FAERS Safety Report 10278880 (Version 1)
Quarter: 2014Q3

REPORT INFORMATION
  Report Type: Report from Study
  Country: BR (occurrence: BR)
  Receive Date: 20140706
  Receipt Date: 20140706
  Transmission Date: 20150326
  Serious: Yes (Other)
  Sender: FDA-Public Use
  Company Number: PHHY2014BR082664

PATIENT
  Sex: Male
  Weight: 65 kg

DRUGS (4)
  1. RITALIN LA [Suspect]
     Active Substance: METHYLPHENIDATE HYDROCHLORIDE
     Indication: DISTURBANCE IN ATTENTION
     Dosage: 1 DF, QD
     Dates: start: 201405
  2. HALDOL [Suspect]
     Active Substance: HALOPERIDOL
     Dosage: 20 DROPS IN THE MORNING AND 15 DROPS AT NIGHT
     Dates: start: 2006, end: 201403
  3. RISPERIDONA [Concomitant]
     Active Substance: RISPERIDONE
     Indication: DISTURBANCE IN ATTENTION
     Dosage: 0.25 MG, BID (0.25MG IN THE MORNING AND 0.25MG AT NIGHT)
     Dates: start: 201406
  4. TOFRANIL [Concomitant]
     Active Substance: IMIPRAMINE HYDROCHLORIDE
     Dosage: 1 DF, QD
     Dates: start: 201405

REACTIONS (8)
  - Asperger^s disorder [Recovering/Resolving]
  - Euphoric mood [Recovering/Resolving]
  - Agitation [Recovering/Resolving]
  - Hypersomnia [Recovering/Resolving]
  - Insomnia [Recovering/Resolving]
  - Stereotypy [Recovering/Resolving]
  - Fatigue [Recovering/Resolving]
  - Abnormal behaviour [Recovering/Resolving]
